FAERS Safety Report 5910816-8 (Version None)
Quarter: 2008Q4

REPORT INFORMATION
  Report Type: 
  Country: None (occurrence: None)
  Receive Date: 20081007
  Receipt Date: 20080513
  Transmission Date: 20090506
  Serious: No
  Sender: FDA-Public Use
  Company Number: US-ASTRAZENECA-2008UW09818

PATIENT
  Age: 66 Year
  Sex: Female
  Weight: 67.1 kg

DRUGS (2)
  1. ARIMIDEX [Suspect]
     Indication: BREAST CANCER FEMALE
     Route: 048
     Dates: start: 20080512
  2. CALCIUM [Concomitant]

REACTIONS (3)
  - COUGH [None]
  - INSOMNIA [None]
  - THROAT IRRITATION [None]
